FAERS Safety Report 18341788 (Version 1)
Quarter: 2020Q4

REPORT INFORMATION
  Report Type: Other
  Country: AE (occurrence: AE)
  Receive Date: 20201005
  Receipt Date: 20201005
  Transmission Date: 20210113
  Serious: Yes (Other)
  Sender: FDA-Public Use
  Company Number: AE-ROCHE-2689295

PATIENT
  Age: 79 Year
  Sex: Male

DRUGS (2)
  1. TOCILIZUMAB. [Suspect]
     Active Substance: TOCILIZUMAB
     Indication: COVID-19
     Route: 042
  2. HEPARIN [Concomitant]
     Active Substance: HEPARIN SODIUM
     Dosage: 5000
     Route: 058

REACTIONS (4)
  - Pulmonary embolism [Unknown]
  - Off label use [Unknown]
  - Bacterial infection [Unknown]
  - Intentional product use issue [Unknown]
